FAERS Safety Report 14613531 (Version 5)
Quarter: 2020Q3

REPORT INFORMATION
  Report Type: Spontaneous
  Country: US (occurrence: US)
  Receive Date: 20180308
  Receipt Date: 20200723
  Transmission Date: 20201102
  Serious: No
  Sender: FDA-Public Use
  Company Number: US-PFIZER INC-2016318448

PATIENT
  Age: 68 Year
  Sex: Female

DRUGS (25)
  1. BUTALB/ACETAMINOPHEN/CAFF [Concomitant]
     Indication: NEUROPATHY PERIPHERAL
  2. CELECOXIB. [Concomitant]
     Active Substance: CELECOXIB
     Dosage: 200 MG
  3. FLUTICASONE PROPIONATE. [Concomitant]
     Active Substance: FLUTICASONE PROPIONATE
     Dosage: UNK, AS NEEDED
     Route: 045
  4. LYRICA [Suspect]
     Active Substance: PREGABALIN
     Indication: FIBROMYALGIA
     Dosage: 75 MG, 2X/DAY
  5. LYRICA [Suspect]
     Active Substance: PREGABALIN
     Indication: MIGRAINE
  6. HYDROCODONE/VICODIN [Concomitant]
     Indication: RHEUMATOID ARTHRITIS
  7. METOPROLOL XL [Concomitant]
     Active Substance: METOPROLOL SUCCINATE
     Dosage: 50 MG, 2X/DAY
  8. BABY ASPIRIN [Concomitant]
     Active Substance: ASPIRIN
     Dosage: UNK
  9. LYRICA [Suspect]
     Active Substance: PREGABALIN
     Indication: OSTEOPOROSIS
     Dosage: 150 MG, 2X/DAY
     Route: 048
  10. LYRICA [Suspect]
     Active Substance: PREGABALIN
     Indication: ARTHRITIS
  11. LYRICA [Suspect]
     Active Substance: PREGABALIN
     Indication: HEADACHE
  12. HYDROCODONE/VICODIN [Concomitant]
     Indication: NEUROPATHY PERIPHERAL
  13. LYRICA [Suspect]
     Active Substance: PREGABALIN
     Indication: NECK PAIN
  14. BUTALB/ACETAMINOPHEN/CAFF [Concomitant]
     Indication: MIGRAINE
     Dosage: UNK [BUTALB: 50/ACETAMINOPHEN: 325]
  15. BUTALB/ACETAMINOPHEN/CAFF [Concomitant]
     Indication: RHEUMATOID ARTHRITIS
  16. HYDROCODONE/VICODIN [Concomitant]
     Indication: MIGRAINE
     Dosage: UNK [HYDROCODONE: 10MG/VICODIN: 325MG]
  17. LYRICA [Suspect]
     Active Substance: PREGABALIN
     Indication: NEUROPATHY PERIPHERAL
     Dosage: 75 MG, 3X/DAY
     Dates: start: 201801
  18. LYRICA [Suspect]
     Active Substance: PREGABALIN
     Indication: RHEUMATOID ARTHRITIS
  19. MONTELUKAST SOD [Concomitant]
     Active Substance: MONTELUKAST SODIUM
     Dosage: 10 MG
  20. HYDROXYCHLOROQUINE [Concomitant]
     Active Substance: HYDROXYCHLOROQUINE
     Dosage: UNK (200)
  21. CLONIDINE HCL [Concomitant]
     Active Substance: CLONIDINE HYDROCHLORIDE
     Dosage: 0.1 MG
  22. LYRICA [Suspect]
     Active Substance: PREGABALIN
     Indication: PAIN
  23. LEVOCETIRIZINE [Concomitant]
     Active Substance: LEVOCETIRIZINE
     Dosage: 5 MG
  24. VALSTAR [Concomitant]
     Active Substance: VALRUBICIN
     Dosage: 160 MG
  25. ALPRAZOLAM. [Concomitant]
     Active Substance: ALPRAZOLAM
     Dosage: 0.5 MG

REACTIONS (5)
  - Muscle spasms [Unknown]
  - Product dispensing error [Unknown]
  - Pain [Unknown]
  - Arthralgia [Unknown]
  - Pain in extremity [Unknown]
